FAERS Safety Report 5910920-4 (Version None)
Quarter: 2008Q4

REPORT INFORMATION
  Report Type: 
  Country: None (occurrence: None)
  Receive Date: 20081007
  Receipt Date: 20080709
  Transmission Date: 20090506
  Serious: No
  Sender: FDA-Public Use
  Company Number: US-ASTRAZENECA-2008UW13725

PATIENT
  Age: 59 Year
  Sex: Female
  Weight: 70.3 kg

DRUGS (11)
  1. ARIMIDEX [Suspect]
     Indication: BREAST CANCER
     Route: 048
     Dates: start: 20080317
  2. KY PEARLS OR OVULES [Concomitant]
  3. CYMBALTA [Concomitant]
  4. COGENTIN [Concomitant]
  5. NAVANE [Concomitant]
  6. TRANXENE [Concomitant]
  7. VISTARIL [Concomitant]
  8. DESIPRAMINE HCL [Concomitant]
  9. FOSAMAX [Concomitant]
  10. GRANISETRON [Concomitant]
  11. CALTRATE [Concomitant]

REACTIONS (6)
  - ARTHRALGIA [None]
  - CONTUSION [None]
  - DYSURIA [None]
  - HAEMORRHAGE [None]
  - NAUSEA [None]
  - SENSATION OF HEAVINESS [None]
